FAERS Safety Report 7631073-0 (Version None)
Quarter: 2011Q3

REPORT INFORMATION
  Report Type: 
  Country: None (occurrence: None)
  Receive Date: 20110725
  Receipt Date: 20110719
  Transmission Date: 20111222
  Serious: Yes (Death)
  Sender: FDA-Public Use
  Company Number: US-CELGENEUS-163-21880-11043350

PATIENT
  Sex: Female

DRUGS (5)
  1. MELATONIN [Concomitant]
     Indication: SLEEP DISORDER
     Route: 048
  2. PROTONIX [Concomitant]
     Route: 065
  3. REVLIMID [Suspect]
     Dosage: 5 MILLIGRAM
     Route: 048
     Dates: start: 20100816, end: 20110401
  4. PREDNISONE [Concomitant]
     Route: 048
  5. ATROVENT [Concomitant]
     Route: 045

REACTIONS (1)
  - DEATH [None]
